FAERS Safety Report 13003088 (Version 1)
Quarter: 2016Q4

REPORT INFORMATION
  Report Type: Spontaneous
  Country: CZ (occurrence: CZ)
  Receive Date: 20161206
  Receipt Date: 20161206
  Transmission Date: 20170207
  Serious: Yes (Hospitalization, Other)
  Sender: FDA-Public Use
  Company Number: CZ-MYLANLABS-2016M1052403

PATIENT

DRUGS (11)
  1. DESMOPRESSIN [Suspect]
     Active Substance: DESMOPRESSIN
     Dosage: 120 MICROG DESMOPRESSIN DIVIDED INTO THREE DAILY DOSES, FROM MONTH 4 - 7
     Route: 065
  2. DESMOPRESSIN [Suspect]
     Active Substance: DESMOPRESSIN
     Dosage: 90 MICROG DESMOPRESSIN DIVIDED INTO THREE DAILY DOSES; IN 3ED MONTH
     Route: 065
  3. DESMOPRESSIN [Suspect]
     Active Substance: DESMOPRESSIN
     Dosage: 90 MICROG DESMOPRESSIN DIVIDED INTO THREE DAILY DOSES; IN 3ED MONTH
     Route: 065
  4. LEVETIRACETAM. [Concomitant]
     Active Substance: LEVETIRACETAM
     Indication: PRODUCT USED FOR UNKNOWN INDICATION
     Route: 065
  5. DESMOPRESSIN [Suspect]
     Active Substance: DESMOPRESSIN
     Indication: POLYDIPSIA
     Dosage: 60 MICROG DESMOPRESSIN DIVIDED INTO TWO DAILY DOSES; IN FIRST AND 2ED MONTH
     Route: 065
  6. DESMOPRESSIN [Suspect]
     Active Substance: DESMOPRESSIN
     Indication: POLYURIA
     Dosage: 60 MICROG DESMOPRESSIN DIVIDED INTO TWO DAILY DOSES; IN FIRST AND 2ED MONTH
     Route: 065
  7. DESMOPRESSIN [Suspect]
     Active Substance: DESMOPRESSIN
     Dosage: 120 MICROG DESMOPRESSIN DIVIDED INTO THREE DAILY DOSES, FROM MONTH 4 - 7
     Route: 065
  8. DESMOPRESSIN [Suspect]
     Active Substance: DESMOPRESSIN
     Dosage: 210 MICROG DESMOPRESSIN DIVIDED INTO THREE DAILY DOSES, IN MONTH 8 - 9
     Route: 065
  9. METHYLPHENIDATE. [Concomitant]
     Active Substance: METHYLPHENIDATE
     Indication: PRODUCT USED FOR UNKNOWN INDICATION
     Route: 065
  10. DESMOPRESSIN [Suspect]
     Active Substance: DESMOPRESSIN
     Dosage: 210 MICROG DESMOPRESSIN DIVIDED INTO THREE DAILY DOSES, IN MONTH 8 - 9
     Route: 065
  11. RISPERIDONE. [Concomitant]
     Active Substance: RISPERIDONE
     Indication: PRODUCT USED FOR UNKNOWN INDICATION
     Route: 065

REACTIONS (3)
  - Water intoxication [Recovered/Resolved]
  - Hyponatraemic encephalopathy [Recovered/Resolved]
  - Hyponatraemia [Recovered/Resolved]
